FAERS Safety Report 4878630-2 (Version None)
Quarter: 2006Q1

REPORT INFORMATION
  Report Type: 
  Country: None (occurrence: None)
  Receive Date: 20060110
  Receipt Date: 20051228
  Transmission Date: 20060701
  Serious: Yes (Other)
  Sender: FDA-Public Use
  Company Number: 2006000485

PATIENT
  Age: 84 Year
  Sex: Female
  Weight: 44.4525 kg

DRUGS (6)
  1. MACUGEN [Suspect]
     Indication: MACULAR DEGENERATION
     Dates: start: 20050511, end: 20051208
  2. ASPIRIN [Suspect]
     Indication: ILL-DEFINED DISORDER
  3. ZOCOR [Concomitant]
  4. NORVASC [Concomitant]
  5. DILANTIN [Concomitant]
  6. PRIMIDONE [Concomitant]

REACTIONS (4)
  - ACTIVATED PARTIAL THROMBOPLASTIN TIME PROLONGED [None]
  - ASPARTATE AMINOTRANSFERASE INCREASED [None]
  - ENDOPHTHALMITIS [None]
  - STAPHYLOCOCCAL INFECTION [None]
